FAERS Safety Report 21181682 (Version 1)
Quarter: 2022Q3

REPORT INFORMATION
  Report Type: Spontaneous
  Country: US (occurrence: US)
  Receive Date: 20220806
  Receipt Date: 20220806
  Transmission Date: 20221026
  Serious: No
  Sender: FDA-Public Use
  Company Number: US-SA-SAC20220803000940

PATIENT
  Age: 69 Year
  Sex: Male
  Weight: 153.3 kg

DRUGS (17)
  1. TOUJEO [Suspect]
     Active Substance: INSULIN GLARGINE
     Dosage: 80 U
     Route: 065
     Dates: end: 20220725
  2. TOUJEO [Suspect]
     Active Substance: INSULIN GLARGINE
     Dosage: 100 U
     Dates: start: 20220726
  3. KORLYM [Concomitant]
     Active Substance: MIFEPRISTONE
     Indication: Cushing^s syndrome
     Dosage: 300 MG, BID
     Route: 048
     Dates: start: 20220111, end: 2022
  4. KORLYM [Concomitant]
     Active Substance: MIFEPRISTONE
     Dosage: 300 MG, QD
     Route: 048
     Dates: start: 20220330
  5. KORLYM [Concomitant]
     Active Substance: MIFEPRISTONE
     Dosage: 600 MG, QD
     Route: 048
     Dates: start: 202204
  6. AMLODIPINE [Concomitant]
     Active Substance: AMLODIPINE BESYLATE
  7. ATORVASTATIN [Concomitant]
     Active Substance: ATORVASTATIN
  8. FUROSEMIDE [Concomitant]
     Active Substance: FUROSEMIDE
     Indication: Oedema
     Dosage: 80 MG IN THE MORNING AND 40 MG AT 1:00 PM
  9. GLIMEPIRIDE [Concomitant]
     Active Substance: GLIMEPIRIDE
  10. JARDIANCE [Concomitant]
     Active Substance: EMPAGLIFLOZIN
  11. LISINOPRIL [Concomitant]
     Active Substance: LISINOPRIL
  12. PIOGLITAZONE [Concomitant]
     Active Substance: PIOGLITAZONE
  13. SPIRONOLACTONE [Concomitant]
     Active Substance: SPIRONOLACTONE
     Indication: Oedema
  14. SOLIQUA 100/33 [Concomitant]
     Active Substance: INSULIN GLARGINE\LIXISENATIDE
  15. VASCEPA [Concomitant]
     Active Substance: ICOSAPENT ETHYL
  16. XARELTO [Concomitant]
     Active Substance: RIVAROXABAN
  17. TAMSULOSIN [Concomitant]
     Active Substance: TAMSULOSIN
     Indication: Dysuria
     Dosage: UNK
     Dates: start: 20220727

REACTIONS (9)
  - Blepharospasm [Not Recovered/Not Resolved]
  - Electrolyte imbalance [Not Recovered/Not Resolved]
  - Dysuria [Unknown]
  - Glomerular filtration rate decreased [Unknown]
  - Muscle spasms [Recovered/Resolved]
  - Blood glucose increased [Unknown]
  - Oedema [Recovering/Resolving]
  - Hypoglycaemia [Unknown]
  - Glycosylated haemoglobin increased [Not Recovered/Not Resolved]

NARRATIVE: CASE EVENT DATE: 20220726
